FAERS Safety Report 5734879-8 (Version None)
Quarter: 2008Q2

REPORT INFORMATION
  Report Type: 
  Country: None (occurrence: None)
  Receive Date: 20080512
  Receipt Date: 20080501
  Transmission Date: 20081010
  Serious: Yes (Other)
  Sender: FDA-Public Use
  Company Number: B0502669A

PATIENT
  Sex: Male

DRUGS (3)
  1. PAROXETINE HCL [Suspect]
     Indication: STRESS
     Route: 065
     Dates: start: 19961221
  2. PAROXETINE HCL [Suspect]
     Dates: start: 20070717
  3. REBOXETINE [Concomitant]
     Dates: start: 19990812

REACTIONS (11)
  - ABDOMINAL PAIN [None]
  - AGGRESSION [None]
  - CONFUSIONAL STATE [None]
  - DIARRHOEA [None]
  - DISCOMFORT [None]
  - DIZZINESS [None]
  - DRUG WITHDRAWAL SYNDROME [None]
  - ELECTRIC SHOCK [None]
  - FEELING ABNORMAL [None]
  - HYPERHIDROSIS [None]
  - NERVOUSNESS [None]
